FAERS Safety Report 23386957 (Version 3)
Quarter: 2025Q4

REPORT INFORMATION
  Report Type: Report from Study
  Country: EU (occurrence: EU)
  Receive Date: 20240110
  Receipt Date: 20251110
  Transmission Date: 20260117
  Serious: No
  Sender: JAZZ
  Company Number: EU-JAZZ PHARMACEUTICALS-2024-FR-000367

PATIENT

DRUGS (2)
  1. EPIDIOLEX [Suspect]
     Active Substance: CANNABIDIOL
     Indication: Severe myoclonic epilepsy of infancy
     Dosage: 9.9 MILLIGRAM/KILOGRAM, QD
  2. EPIDIOLEX [Suspect]
     Active Substance: CANNABIDIOL
     Indication: Epilepsy
     Dosage: 5 MILLIGRAM/KILOGRAM, QD

REACTIONS (2)
  - Neonatal cholestasis [Not Recovered/Not Resolved]
  - Aspartate aminotransferase increased [Recovered/Resolved]

NARRATIVE: CASE EVENT DATE: 20231031
